FAERS Safety Report 11073043 (Version 2)
Quarter: 2015Q2

REPORT INFORMATION
  Report Type: Spontaneous
  Country: JP (occurrence: JP)
  Receive Date: 20150428
  Receipt Date: 20150526
  Transmission Date: 20150821
  Serious: Yes (Other)
  Sender: FDA-Public Use
  Company Number: JP-GLAXOSMITHKLINE-JP2015JPN055043

PATIENT
  Sex: Male

DRUGS (2)
  1. VOTRIENT [Suspect]
     Active Substance: PAZOPANIB HYDROCHLORIDE
     Dosage: UNK UNK, 1D
     Route: 048
     Dates: start: 201504, end: 20150418
  2. VOTRIENT [Suspect]
     Active Substance: PAZOPANIB HYDROCHLORIDE
     Indication: METASTATIC RENAL CELL CARCINOMA
     Dosage: 600 MG, 1D
     Route: 048
     Dates: start: 201411, end: 201504

REACTIONS (3)
  - Diarrhoea [Recovering/Resolving]
  - Metastatic renal cell carcinoma [Unknown]
  - Metastases to lung [Unknown]

NARRATIVE: CASE EVENT DATE: 201504
